FAERS Safety Report 14747665 (Version 1)
Quarter: 2018Q2

REPORT INFORMATION
  Report Type: Spontaneous
  Country: US (occurrence: US)
  Receive Date: 20180411
  Receipt Date: 20180411
  Transmission Date: 20180711
  Serious: Yes (Other)
  Sender: FDA-Public Use
  Company Number: US-TEVA-2018-US-879637

PATIENT
  Age: 4 Year
  Sex: Male

DRUGS (1)
  1. MEGESTROL [Suspect]
     Active Substance: MEGESTROL
     Indication: DECREASED APPETITE
     Route: 065

REACTIONS (1)
  - Adrenal insufficiency [Recovering/Resolving]
